FAERS Safety Report 9360924 (Version 4)
Quarter: 2013Q3

REPORT INFORMATION
  Report Type: Spontaneous
  Country: SE (occurrence: SE)
  Receive Date: 20130621
  Receipt Date: 20130806
  Transmission Date: 20140515
  Serious: Yes (Death)
  Sender: FDA-Public Use
  Company Number: SE-ROCHE-1237804

PATIENT
  Sex: Female

DRUGS (3)
  1. MABTHERA [Suspect]
     Indication: MANTLE CELL LYMPHOMA
     Route: 042
     Dates: start: 20111021, end: 20120917
  2. MABTHERA [Suspect]
     Indication: B-CELL LYMPHOMA
  3. BENDAMUSTINE [Concomitant]
     Indication: B-CELL LYMPHOMA

REACTIONS (1)
  - Progressive multifocal leukoencephalopathy [Fatal]
